FAERS Safety Report 9734315 (Version 1)
Quarter: 2013Q4

REPORT INFORMATION
  Report Type: Report from Study
  Country: US (occurrence: US)
  Receive Date: 20131206
  Receipt Date: 20131206
  Transmission Date: 20140711
  Serious: No
  Sender: FDA-Public Use
  Company Number: US-B.I. PHARMACEUTICALS,INC./RIDGEFIELD-2013-BI-39142BI

PATIENT
  Age: 71 Year
  Sex: Female

DRUGS (10)
  1. GILOTRIF [Suspect]
     Indication: NON-SMALL CELL LUNG CANCER
     Dosage: 20 MG
     Route: 048
     Dates: start: 20131122
  2. METFORMIN [Concomitant]
  3. SIMVASTATIN [Concomitant]
  4. MULTI VITAMIN [Concomitant]
  5. CALCIUM [Concomitant]
  6. VITAMIN D [Concomitant]
  7. FENTANYL PATCH [Concomitant]
  8. MORPHINE [Concomitant]
  9. ANTI-CHOLESTEROL MEDICATION [Concomitant]
  10. RADIATION TREATMENT [Concomitant]

REACTIONS (3)
  - Diarrhoea [Not Recovered/Not Resolved]
  - Vomiting [Not Recovered/Not Resolved]
  - Weight decreased [Not Recovered/Not Resolved]
